FAERS Safety Report 6644958-9 (Version None)
Quarter: 2010Q1

REPORT INFORMATION
  Report Type: 
  Country: None (occurrence: None)
  Receive Date: 20100322
  Receipt Date: 20100310
  Transmission Date: 20100710
  Serious: Yes (Hospitalization)
  Sender: FDA-Public Use
  Company Number: PHHY2009JP50426

PATIENT
  Sex: Female

DRUGS (15)
  1. TASIGNA [Suspect]
     Indication: CHRONIC MYELOID LEUKAEMIA
     Dosage: 800 MG, UNK
     Route: 048
     Dates: start: 20091112, end: 20091113
  2. TASIGNA [Suspect]
     Dosage: 400 MG, UNK
     Route: 048
     Dates: start: 20091114, end: 20091114
  3. TASIGNA [Suspect]
     Dosage: 200 MG, UNK
     Route: 048
     Dates: start: 20091208, end: 20100106
  4. TASIGNA [Suspect]
     Dosage: 200 MG, UNK
     Route: 048
     Dates: start: 20100127
  5. TEGRETOL [Concomitant]
     Dosage: 400 MG, UNK
     Route: 048
     Dates: start: 20061222
  6. AMLODIPINE [Concomitant]
     Dosage: 5 MG, UNK
     Route: 048
     Dates: start: 20061222
  7. NIFE - SLOW RELEASE [Concomitant]
     Dosage: 40 MG, UNK
     Route: 048
     Dates: start: 20061222
  8. TRIHEXIN [Concomitant]
     Dosage: 6 MG, UNK
     Route: 048
     Dates: start: 20061222
  9. SULPIRIDE [Concomitant]
     Dosage: 150 MG, UNK
     Route: 048
     Dates: start: 20061222
  10. MAJORPIN [Concomitant]
     Dosage: 75 MG, UNK
     Route: 048
     Dates: start: 20061222
  11. LITHIUM CARBONATE [Concomitant]
     Dosage: 400 MG, UNK
     Route: 048
     Dates: start: 20061222
  12. HIBERNA [Concomitant]
     Dosage: 25 MG, UNK
     Route: 048
     Dates: start: 20061222
  13. RISPERIDONE [Concomitant]
     Dosage: 2 MG, UNK
     Route: 048
     Dates: start: 20061222
  14. FUROSEMIDE [Concomitant]
     Dosage: 40 MG, UNK
     Route: 048
     Dates: start: 20061222
  15. MUCODYNE [Concomitant]
     Indication: BRONCHITIS
     Dosage: UNK
     Dates: start: 20100106, end: 20100115

REACTIONS (2)
  - BRONCHITIS [None]
  - TREMOR [None]
